FAERS Safety Report 5506331-6 (Version None)
Quarter: 2007Q4

REPORT INFORMATION
  Report Type: 
  Country: None (occurrence: None)
  Receive Date: 20071105
  Receipt Date: 20071024
  Transmission Date: 20080405
  Serious: Yes (Other)
  Sender: FDA-Public Use
  Company Number: ZW-GILEAD-2007-0014058

PATIENT
  Sex: Male

DRUGS (5)
  1. TENOFOVIR DISOPROXIL FUMARATE [Suspect]
     Indication: HIV INFECTION
     Dates: start: 20071018
  2. TENOFOVIR DISOPROXIL FUMARATE [Suspect]
     Dates: start: 20071009, end: 20071018
  3. COMBIVIR [Concomitant]
     Indication: HIV INFECTION
  4. COTRIMOXAZOLE [Concomitant]
  5. FLUCONAZOLE [Concomitant]

REACTIONS (1)
  - OVERDOSE [None]
